FAERS Safety Report 13283919 (Version 1)
Quarter: 2017Q1

REPORT INFORMATION
  Report Type: Spontaneous
  Country: IT (occurrence: IT)
  Receive Date: 20170301
  Receipt Date: 20170301
  Transmission Date: 20170428
  Serious: Yes (Hospitalization)
  Sender: FDA-Public Use
  Company Number: IT-TEVA-744827ACC

PATIENT
  Age: 58 Year
  Sex: Female

DRUGS (10)
  1. CLEXANE [Concomitant]
     Active Substance: ENOXAPARIN SODIUM
     Route: 058
  2. GLYCERYL TRINITRATE [Concomitant]
     Active Substance: NITROGLYCERIN
     Route: 062
  3. ALLOPURINOL. [Concomitant]
     Active Substance: ALLOPURINOL
     Route: 048
  4. CARBOPLATIN. [Suspect]
     Active Substance: CARBOPLATIN
     Indication: LUNG NEOPLASM MALIGNANT
     Route: 041
     Dates: start: 20160928, end: 20160928
  5. SERTRALINE [Concomitant]
     Active Substance: SERTRALINE HYDROCHLORIDE
     Route: 048
  6. DILTIAZEM. [Concomitant]
     Active Substance: DILTIAZEM
     Route: 048
  7. DECADRON [Concomitant]
     Active Substance: DEXAMETHASONE
     Route: 041
     Dates: start: 20160928, end: 20160928
  8. ALIMTA [Concomitant]
     Active Substance: PEMETREXED DISODIUM
     Route: 041
     Dates: start: 20160928, end: 20160928
  9. GRANISETRON [Concomitant]
     Active Substance: GRANISETRON
     Route: 041
     Dates: start: 20160928, end: 20160928
  10. OMEPRAZOLE. [Concomitant]
     Active Substance: OMEPRAZOLE
     Route: 048
     Dates: start: 20160928

REACTIONS (1)
  - Anaphylactic shock [Recovered/Resolved]

NARRATIVE: CASE EVENT DATE: 20160928
